FAERS Safety Report 9337277 (Version 1)
Quarter: 2013Q2

REPORT INFORMATION
  Report Type: Spontaneous
  Country: JP (occurrence: JP)
  Receive Date: 20130607
  Receipt Date: 20130607
  Transmission Date: 20140414
  Serious: Yes (Hospitalization)
  Sender: FDA-Public Use
  Company Number: JP-PFIZER INC-2013157300

PATIENT
  Age: 84 Year
  Sex: Male
  Weight: 55 kg

DRUGS (1)
  1. LYRICA [Suspect]
     Indication: NEURALGIA
     Dosage: 25 MG, 4X/DAY
     Route: 048
     Dates: start: 20130302, end: 20130330

REACTIONS (3)
  - Cardiac failure chronic [Recovering/Resolving]
  - Brain natriuretic peptide increased [Recovering/Resolving]
  - Drug ineffective [Recovering/Resolving]
